FAERS Safety Report 4852156-4 (Version None)
Quarter: 2005Q4

REPORT INFORMATION
  Report Type: 
  Country: None (occurrence: None)
  Receive Date: 20051212
  Receipt Date: 20051212
  Transmission Date: 20060501
  Serious: Yes (Hospitalization)
  Sender: FDA-Public Use
  Company Number: None

PATIENT
  Age: 14 Year
  Sex: Male
  Weight: 79.54 kg

DRUGS (1)
  1. GAMMAGARD [Suspect]
     Indication: AUTOIMMUNE DISORDER
     Dosage: 406 MG Q 3 WEEKS IV
     Route: 042
     Dates: start: 20051207

REACTIONS (2)
  - COUGH [None]
  - DYSPNOEA [None]
